FAERS Safety Report 10340518 (Version 3)
Quarter: 2014Q3

REPORT INFORMATION
  Report Type: Spontaneous
  Country: JP (occurrence: JP)
  Receive Date: 20140724
  Receipt Date: 20140829
  Transmission Date: 20150326
  Serious: Yes (Hospitalization, Other)
  Sender: FDA-Public Use
  Company Number: JP-PFIZER INC-2014208053

PATIENT
  Age: 38 Year
  Sex: Female
  Weight: 65 kg

DRUGS (8)
  1. AVASTIN [Suspect]
     Active Substance: BEVACIZUMAB
     Indication: RECTAL CANCER METASTATIC
     Dosage: 310 MG, DAILY, EVERY 2 WEEKS
     Route: 041
     Dates: start: 20140127, end: 20140610
  2. ZOSYN [Suspect]
     Active Substance: PIPERACILLIN SODIUM\TAZOBACTAM SODIUM
     Indication: FEBRILE NEUTROPENIA
     Dosage: 4.5 MG, 4X/DAY
     Route: 041
     Dates: start: 20140624, end: 20140628
  3. ALOXI [Concomitant]
     Active Substance: PALONOSETRON HYDROCHLORIDE
     Indication: PROPHYLAXIS OF NAUSEA AND VOMITING
     Dosage: 0.75 MG, DAILY
     Route: 041
     Dates: start: 20130311, end: 20140610
  4. IRINOTECAN HYDROCHLORIDE. [Suspect]
     Active Substance: IRINOTECAN HYDROCHLORIDE
     Indication: RECTAL CANCER METASTATIC
     Dosage: 250 MG, DAILY, EVERY 2 WEEKS
     Route: 041
     Dates: start: 20140127, end: 20140610
  5. 5-FU [Concomitant]
     Active Substance: FLUOROURACIL
     Indication: RECTAL CANCER METASTATIC
     Dosage: 660 MG, DAILY
     Route: 042
     Dates: start: 20140127, end: 20140610
  6. LEVOFOLINATE [Concomitant]
     Active Substance: LEVOLEUCOVORIN CALCIUM
     Indication: RECTAL CANCER METASTATIC
     Dosage: 330 MG, DAILY
     Route: 041
     Dates: start: 20140127, end: 20140610
  7. DECADRON [Concomitant]
     Active Substance: DEXAMETHASONE
     Indication: PROPHYLAXIS OF NAUSEA AND VOMITING
     Dosage: 3.3 MG, DAILY
     Route: 041
     Dates: start: 20130311, end: 20140610
  8. 5-FU [Concomitant]
     Active Substance: FLUOROURACIL
     Dosage: 4000 MG, DAILY
     Route: 041
     Dates: start: 20140127, end: 20140610

REACTIONS (3)
  - Febrile neutropenia [Recovered/Resolved]
  - Interstitial lung disease [Recovered/Resolved]
  - Off label use [Recovered/Resolved]

NARRATIVE: CASE EVENT DATE: 20140624
